FAERS Safety Report 11825669 (Version 1)
Quarter: 2015Q4

REPORT INFORMATION
  Report Type: Spontaneous
  Country: US (occurrence: US)
  Receive Date: 20151211
  Receipt Date: 20151211
  Transmission Date: 20160305
  Serious: No
  Sender: FDA-Public Use
  Company Number: US-JNJFOC-20150611056

PATIENT
  Sex: Male

DRUGS (6)
  1. BREO ELLIPTA [Concomitant]
     Active Substance: FLUTICASONE FUROATE\VILANTEROL TRIFENATATE
     Route: 065
  2. IMBRUVICA [Suspect]
     Active Substance: IBRUTINIB
     Indication: MANTLE CELL LYMPHOMA
     Route: 048
     Dates: start: 20150423
  3. MOMETASONE FUROATE. [Concomitant]
     Active Substance: MOMETASONE FUROATE
     Route: 065
  4. ACETAMINOPHEN. [Concomitant]
     Active Substance: ACETAMINOPHEN
     Indication: SKELETAL INJURY
  5. ACETAMINOPHEN. [Concomitant]
     Active Substance: ACETAMINOPHEN
     Indication: MUSCLE DISORDER
  6. TRAVATAN [Concomitant]
     Active Substance: TRAVOPROST
     Route: 065

REACTIONS (11)
  - Drug dose omission [Not Recovered/Not Resolved]
  - Joint injury [Not Recovered/Not Resolved]
  - Arthritis [Not Recovered/Not Resolved]
  - Fatigue [Unknown]
  - Myalgia [Unknown]
  - Skin haemorrhage [Unknown]
  - Muscle disorder [Unknown]
  - Arthralgia [Unknown]
  - Balance disorder [Unknown]
  - Urticaria [Unknown]
  - Skeletal injury [Recovering/Resolving]

NARRATIVE: CASE EVENT DATE: 2015
